FAERS Safety Report 8596439-3 (Version None)
Quarter: 2012Q3

REPORT INFORMATION
  Report Type: 
  Country: None (occurrence: None)
  Receive Date: 20120815
  Receipt Date: 20120808
  Transmission Date: 20120928
  Serious: Yes (Other)
  Sender: FDA-Public Use
  Company Number: CO-PFIZER INC-2012195580

PATIENT
  Age: 82 Year
  Sex: Male

DRUGS (6)
  1. ASPIRIN [Concomitant]
     Indication: ANTICOAGULANT THERAPY
     Dosage: ONE TABLET PER DAY
     Route: 048
  2. LATANOPROST [Suspect]
     Indication: GLAUCOMA
     Dosage: 2 DROPS IN EACH EYE AT 2.50ML, 1 AT MORNING AND 1 AT AFTERNOON, 1X/DAY
     Route: 047
     Dates: start: 19980101
  3. LOVASTATIN [Concomitant]
     Indication: BLOOD CHOLESTEROL
     Dosage: UNK
     Route: 048
     Dates: start: 20000101
  4. ISOCOR [Concomitant]
     Indication: CARDIAC DISORDER
     Dosage: 1 TABLET PER DAY
     Route: 048
     Dates: start: 20100101
  5. OMEPRAZOLE [Concomitant]
     Indication: GASTRITIS
     Dosage: UNK
     Route: 048
     Dates: start: 20120601
  6. ISOCOR [Concomitant]
     Indication: BLOOD CHOLESTEROL

REACTIONS (3)
  - VISUAL ACUITY REDUCED [None]
  - GLAUCOMA [None]
  - CARDIAC DISORDER [None]
